FAERS Safety Report 4270535-3 (Version None)
Quarter: 2004Q1

REPORT INFORMATION
  Report Type: 
  Country: None (occurrence: None)
  Receive Date: 20040114
  Receipt Date: 20040106
  Transmission Date: 20041129
  Serious: Yes (Other)
  Sender: FDA-Public Use
  Company Number: GB-GLAXOSMITHKLINE-B0319266A

PATIENT
  Age: 42 Year
  Sex: Female

DRUGS (2)
  1. ZYBAN [Suspect]
  2. RITALIN [Suspect]

REACTIONS (1)
  - DRUG ABUSER [None]
